FAERS Safety Report 10640363 (Version 1)
Quarter: 2014Q4

REPORT INFORMATION
  Report Type: Spontaneous
  Country: US (occurrence: None)
  Receive Date: 20141208
  Receipt Date: 20141208
  Transmission Date: 20150529
  Serious: No
  Sender: FDA-Public Use
  Company Number: None

PATIENT
  Age: 12 Year
  Sex: Male
  Weight: 54.43 kg

DRUGS (1)
  1. GENERIC CONCERTA [Suspect]
     Active Substance: METHYLPHENIDATE HYDROCHLORIDE
     Indication: ATTENTION DEFICIT/HYPERACTIVITY DISORDER
     Dosage: 1 PILL PER DAY ONCE DAILY TAKEN BY MOUTH
     Route: 048
     Dates: start: 20141203, end: 20141204

REACTIONS (6)
  - Irritability [None]
  - Onychophagia [None]
  - Nail bed bleeding [None]
  - Anxiety [None]
  - Anger [None]
  - Drug ineffective [None]

NARRATIVE: CASE EVENT DATE: 20141206
